FAERS Safety Report 14490220 (Version 1)
Quarter: 2018Q1

REPORT INFORMATION
  Report Type: Report from Study
  Country: PK (occurrence: PK)
  Receive Date: 20180206
  Receipt Date: 20180206
  Transmission Date: 20180509
  Serious: Yes (Death)
  Sender: FDA-Public Use
  Company Number: PK-ROCHE-2066956

PATIENT
  Age: 45 Year
  Sex: Male

DRUGS (1)
  1. RISTOVA [Suspect]
     Active Substance: RITUXIMAB
     Indication: DIFFUSE LARGE B-CELL LYMPHOMA
     Route: 042
     Dates: start: 20171030

REACTIONS (4)
  - Blood glucose increased [Fatal]
  - Myocardial infarction [Fatal]
  - Platelet count decreased [Fatal]
  - Hypotension [Fatal]

NARRATIVE: CASE EVENT DATE: 20180129
